FAERS Safety Report 13729069 (Version 1)
Quarter: 2017Q3

REPORT INFORMATION
  Report Type: Spontaneous
  Country: RO (occurrence: RO)
  Receive Date: 20170707
  Receipt Date: 20170707
  Transmission Date: 20171127
  Serious: Yes (Other)
  Sender: FDA-Public Use
  Company Number: RO-SUN PHARMACEUTICAL INDUSTRIES LTD-2017RR-144664

PATIENT
  Age: 60 Year
  Sex: Male

DRUGS (3)
  1. ZOLEDRONIC ACID [Suspect]
     Active Substance: ZOLEDRONIC ACID
     Indication: PRODUCT USED FOR UNKNOWN INDICATION
     Dosage: 4 MG, EVERY 28 DAYS
     Route: 065
     Dates: start: 201404
  2. SUNITINIB [Suspect]
     Active Substance: SUNITINIB
     Dosage: 37.5 MG PO QD (4 WEEKS ON, 2 WEEKS OFF)
     Route: 048
     Dates: start: 2014
  3. SUNITINIB [Suspect]
     Active Substance: SUNITINIB
     Indication: METASTATIC NEOPLASM
     Dosage: 50 MG PO QD (4 WEEKS ON/2 WEEKS OFF)
     Route: 048
     Dates: start: 201303

REACTIONS (7)
  - Hypertension [Unknown]
  - Eye swelling [Unknown]
  - Neurotoxicity [Unknown]
  - Yellow skin [Unknown]
  - Fatigue [Unknown]
  - Oedema [Unknown]
  - Dry skin [Unknown]

NARRATIVE: CASE EVENT DATE: 2014
